FAERS Safety Report 19433062 (Version 1)
Quarter: 2021Q2

REPORT INFORMATION
  Report Type: Spontaneous
  Country: US (occurrence: US)
  Receive Date: 20210617
  Receipt Date: 20210617
  Transmission Date: 20210717
  Serious: Yes (Other)
  Sender: FDA-Public Use
  Company Number: US-HIKMA PHARMACEUTICALS USA INC.-US-H14001-21-02734

PATIENT
  Age: 29 Year
  Sex: Male

DRUGS (2)
  1. FUROSEMIDE. [Suspect]
     Active Substance: FUROSEMIDE
     Indication: FLUID OVERLOAD
     Dosage: 20?80MG
     Route: 048
  2. METOPROLOL. [Suspect]
     Active Substance: METOPROLOL
     Indication: CARDIAC DYSFUNCTION
     Dosage: UNKNOWN
     Route: 065

REACTIONS (5)
  - Acute kidney injury [Unknown]
  - Hypoxia [Unknown]
  - Renal impairment [Unknown]
  - Drug ineffective [Unknown]
  - Heart rate increased [Unknown]
